FAERS Safety Report 9651163 (Version 3)
Quarter: 2013Q4

REPORT INFORMATION
  Report Type: Spontaneous
  Country: US (occurrence: US)
  Receive Date: 20131029
  Receipt Date: 20131212
  Transmission Date: 20140711
  Serious: Yes (Death, Disabling)
  Sender: FDA-Public Use
  Company Number: US-CELGENEUS-163-21880-13104191

PATIENT
  Age: 79 Year
  Sex: Female

DRUGS (2)
  1. REVLIMID [Suspect]
     Indication: AMYLOIDOSIS
     Dosage: 20 MILLIGRAM
     Route: 048
     Dates: start: 20130622
  2. REVLIMID [Suspect]
     Indication: PLASMA CELL MYELOMA

REACTIONS (3)
  - Plasma cell myeloma [Fatal]
  - Cardiac failure congestive [Fatal]
  - Anaemia [Not Recovered/Not Resolved]
